FAERS Safety Report 16204434 (Version 2)
Quarter: 2019Q2

REPORT INFORMATION
  Report Type: Report from Study
  Country: US (occurrence: US)
  Receive Date: 20190416
  Receipt Date: 20190429
  Transmission Date: 20190711
  Serious: Yes (Death, Hospitalization)
  Sender: FDA-Public Use
  Company Number: US-ACTELION-A-NJ2019-188704

PATIENT
  Sex: Male

DRUGS (10)
  1. LEVETIRACETAM. [Concomitant]
     Active Substance: LEVETIRACETAM
     Dosage: 6.75 ML, Q12HRS
     Route: 049
  2. OMEPRAZOLE. [Concomitant]
     Active Substance: OMEPRAZOLE
     Dosage: 5 ML, QD
     Route: 049
  3. POLY-VI-SOL [Concomitant]
     Active Substance: VITAMINS
     Dosage: 0.5 ML, QD
     Route: 049
  4. LORAZEPAM. [Concomitant]
     Active Substance: LORAZEPAM
     Dosage: 4.5 ML, Q6HRS
     Route: 049
  5. BACLOFEN. [Concomitant]
     Active Substance: BACLOFEN
     Dosage: 3 ML Q8HR
     Route: 049
  6. LEVALBUTEROL. [Concomitant]
     Active Substance: LEVALBUTEROL
     Dosage: 1 VIAL Q6HR , Q2H PRN
     Route: 055
  7. TRACLEER [Suspect]
     Active Substance: BOSENTAN
     Indication: PULMONARY ARTERIAL HYPERTENSION
     Dosage: 31.25 MG, BID
     Route: 048
     Dates: start: 201604, end: 20190317
  8. IPRATROPIUM [Concomitant]
     Active Substance: IPRATROPIUM
     Dosage: 2.5 ML, Q6HRS
     Route: 055
  9. LEVOTHYROXINE. [Concomitant]
     Active Substance: LEVOTHYROXINE
     Dosage: 25 MCG
     Route: 049
  10. DIAZEPAM. [Concomitant]
     Active Substance: DIAZEPAM
     Dosage: 7.5 MG
     Route: 054

REACTIONS (4)
  - Unevaluable event [Fatal]
  - Hospitalisation [Unknown]
  - Acute kidney injury [Fatal]
  - Oedema [Unknown]
